FAERS Safety Report 13643432 (Version 1)
Quarter: 2017Q2

REPORT INFORMATION
  Report Type: Spontaneous
  Country: US (occurrence: US)
  Receive Date: 20170612
  Receipt Date: 20170612
  Transmission Date: 20170830
  Serious: No
  Sender: FDA-Public Use
  Company Number: US-DRREDDYS-USA/USA/17/0087036

PATIENT
  Age: 84 Year
  Sex: Female
  Weight: 59.8 kg

DRUGS (1)
  1. AMLODIPINE BESYLATE W/BENAZEPRIL HYDROCHLORIDE [Suspect]
     Active Substance: AMLODIPINE BESYLATE\BENAZEPRIL HYDROCHLORIDE
     Indication: HYPERTENSION
     Dosage: 10MG/20MG
     Route: 048
     Dates: start: 20170119

REACTIONS (1)
  - Product taste abnormal [Unknown]

NARRATIVE: CASE EVENT DATE: 20170119
